FAERS Safety Report 4684582-0 (Version None)
Quarter: 2005Q2

REPORT INFORMATION
  Report Type: 
  Country: None (occurrence: None)
  Receive Date: 20050603
  Receipt Date: 20050524
  Transmission Date: 20051028
  Serious: Yes (Death)
  Sender: FDA-Public Use
  Company Number: 11275

PATIENT
  Age: 69 Year
  Sex: Male
  Weight: 68 kg

DRUGS (27)
  1. CYTARABINE [Suspect]
     Indication: ACUTE MYELOID LEUKAEMIA
     Dosage: 100 MG/M2 DAILY IV
     Route: 042
     Dates: start: 20050429, end: 20050502
  2. DAUNORUBICIN HCL [Suspect]
     Indication: ACUTE MYELOID LEUKAEMIA
     Dosage: 45 MG/M2 DAILY IV
     Route: 042
     Dates: start: 20050429, end: 20050501
  3. ACYCLOVIR [Concomitant]
  4. ALLOPURINOL [Concomitant]
  5. COMPAZINE [Concomitant]
  6. DECADRON [Concomitant]
  7. DEXAMETHASONE [Concomitant]
  8. FLAGYL [Concomitant]
  9. HYDROXYUREA [Concomitant]
  10. LOSARTAN [Concomitant]
  11. MANNITOL [Concomitant]
  12. MICOTINE DERMAL [Concomitant]
  13. REGULAR INSULIN [Concomitant]
  14. RENAGEL [Concomitant]
  15. VALTREX [Concomitant]
  16. ZOFRAN [Concomitant]
  17. AMBIEN [Concomitant]
  18. FLUCONAZOLE [Concomitant]
  19. GATIFLOXACIN [Concomitant]
  20. LASIX [Concomitant]
  21. LIPITOR [Concomitant]
  22. MORPHINE [Concomitant]
  23. OXYCODONE HCL [Concomitant]
  24. ROSIGLITAZONE [Concomitant]
  25. TYLENOL (CAPLET) [Concomitant]
  26. ZANTAC [Concomitant]
  27. MDR-INTRVANENOUS FORMULATION [Suspect]
     Indication: ACUTE MYELOID LEUKAEMIA
     Dosage: 550 MG DAILY IV
     Route: 042
     Dates: start: 20050429, end: 20050501

REACTIONS (12)
  - BACK PAIN [None]
  - BRAIN HERNIATION [None]
  - CEREBRAL HAEMORRHAGE [None]
  - CONFUSIONAL STATE [None]
  - DYSPHASIA [None]
  - FEBRILE NEUTROPENIA [None]
  - FEELING JITTERY [None]
  - HALLUCINATION [None]
  - HEADACHE [None]
  - MENTAL STATUS CHANGES [None]
  - NAUSEA [None]
  - PUPIL FIXED [None]
